FAERS Safety Report 6309232-9 (Version None)
Quarter: 2009Q3

REPORT INFORMATION
  Report Type: 
  Country: None (occurrence: None)
  Receive Date: 20090814
  Receipt Date: 20090806
  Transmission Date: 20100115
  Serious: Yes (Other)
  Sender: FDA-Public Use
  Company Number: US-PFIZER INC-2009253676

PATIENT
  Sex: Male
  Weight: 79 kg

DRUGS (6)
  1. LIPITOR [Suspect]
     Indication: BLOOD CHOLESTEROL INCREASED
     Route: 048
     Dates: start: 19970101
  2. IBUPROFEN [Concomitant]
     Dosage: 800 MG, 1X/DAY
  3. LISINOPRIL [Concomitant]
     Dosage: 10 MG, 1X/DAY
  4. ASPIRIN [Concomitant]
     Dosage: UNK
  5. OMEPRAZOLE [Concomitant]
     Dosage: UNK
  6. VALIUM [Concomitant]
     Dosage: UNK

REACTIONS (4)
  - ARTERIAL DISORDER [None]
  - DIABETES MELLITUS [None]
  - MUSCLE SPASMS [None]
  - RESTLESS LEGS SYNDROME [None]
